FAERS Safety Report 7418734-3 (Version None)
Quarter: 2011Q2

REPORT INFORMATION
  Report Type: 
  Country: None (occurrence: None)
  Receive Date: 20110415
  Receipt Date: 20110408
  Transmission Date: 20111010
  Serious: Yes (Hospitalization)
  Sender: FDA-Public Use
  Company Number: US-B.I. PHARMACEUTICALS,INC./RIDGEFIELD-2011-BP-09747BP

PATIENT
  Age: 76 Year
  Sex: Male

DRUGS (11)
  1. COLCHICINE [Concomitant]
     Indication: GOUT
     Dosage: 6 MG
     Route: 048
     Dates: start: 20100701
  2. LISINOPRIL [Concomitant]
     Indication: HYPERTENSION
     Dosage: 40 MG
     Route: 048
     Dates: start: 20110101
  3. PREDNISONE [Concomitant]
     Indication: ARTHRITIS
     Dosage: 5 MG
     Route: 048
     Dates: start: 20080101
  4. COLCHICINE [Concomitant]
     Dosage: 5 MG
     Route: 048
  5. PRADAXA [Suspect]
     Indication: ATRIAL FIBRILLATION
     Dosage: 300 MG
     Route: 048
     Dates: start: 20110316, end: 20110317
  6. DILTIAZEM [Concomitant]
     Indication: HYPERTENSION
     Dosage: 300 MG
     Route: 048
     Dates: start: 20100901
  7. OMEPRAZOLE [Concomitant]
     Indication: GASTROOESOPHAGEAL REFLUX DISEASE
     Dosage: 20 MG
     Route: 048
     Dates: start: 20100701
  8. VITAMIN D [Concomitant]
     Indication: OSTEOPOROSIS
     Dosage: 1000 MG
     Route: 048
     Dates: start: 20070101
  9. PREDNISONE [Concomitant]
     Indication: GOUT
  10. OMEPRAZOLE [Concomitant]
     Indication: ULCER
  11. ASPIRIN [Concomitant]
     Indication: ROUTINE HEALTH MAINTENANCE
     Dosage: 81 MG
     Route: 048

REACTIONS (1)
  - HAEMOPTYSIS [None]
